FAERS Safety Report 5492036-7 (Version None)
Quarter: 2007Q4

REPORT INFORMATION
  Report Type: 
  Country: None (occurrence: None)
  Receive Date: 20071018
  Receipt Date: 20071018
  Transmission Date: 20080405
  Serious: Yes (Other)
  Sender: FDA-Public Use
  Company Number: None

PATIENT
  Age: 21 Year
  Sex: Male
  Weight: 72.5755 kg

DRUGS (1)
  1. TRIPACK AZITHROMYCIN [Suspect]
     Indication: BRONCHITIS
     Dates: start: 20071009, end: 20071011

REACTIONS (3)
  - EPISTAXIS [None]
  - LEUKOCYTOCLASTIC VASCULITIS [None]
  - PLATELET COUNT ABNORMAL [None]
